FAERS Safety Report 6893615-2 (Version None)
Quarter: 2010Q3

REPORT INFORMATION
  Report Type: 
  Country: None (occurrence: None)
  Receive Date: 20100731
  Receipt Date: 20091028
  Transmission Date: 20110219
  Serious: No
  Sender: FDA-Public Use
  Company Number: US-PFIZER INC-2009238955

PATIENT
  Sex: Male
  Weight: 86.2 kg

DRUGS (7)
  1. LIPITOR [Suspect]
     Indication: CARDIAC DISORDER
     Dosage: UNK
     Dates: start: 20080101
  2. AMLODIPINE BESYLATE/VALSARTAN [Concomitant]
     Dosage: UNK
  3. ZOCOR [Concomitant]
     Dosage: UNK
  4. LOPID [Concomitant]
     Dosage: UNK
  5. ANDROGEL [Concomitant]
     Dosage: UNK
  6. OMACOR [Concomitant]
     Dosage: UNK
  7. FISH OIL [Concomitant]
     Dosage: UNK

REACTIONS (3)
  - ALOPECIA [None]
  - MYALGIA [None]
  - PAIN IN EXTREMITY [None]
